FAERS Safety Report 6119333-6 (Version None)
Quarter: 2009Q1

REPORT INFORMATION
  Report Type: 
  Country: None (occurrence: None)
  Receive Date: 20090316
  Receipt Date: 20090312
  Transmission Date: 20090719
  Serious: Yes (Death)
  Sender: FDA-Public Use
  Company Number: PHHY2009BR09219

PATIENT
  Age: 104 Year
  Sex: Female

DRUGS (3)
  1. DIOVAN [Suspect]
     Indication: HYPERTENSION
     Dosage: 160 MG, QD (IN THE MORNING)
     Route: 048
     Dates: start: 20090308, end: 20090309
  2. ODOL DROPS [Concomitant]
     Indication: AGITATION
     Dosage: 10 DROPS A DAY
     Route: 048
     Dates: start: 20081201
  3. SERTRALINE HYDROCHLORIDE [Concomitant]
     Indication: ANTIDEPRESSANT THERAPY
     Dosage: 1 DF, QD (MORNING)
     Route: 048
     Dates: start: 20080701

REACTIONS (1)
  - DEATH [None]
